FAERS Safety Report 24559135 (Version 1)
Quarter: 2024Q4

REPORT INFORMATION
  Report Type: Spontaneous
  Country: US (occurrence: US)
  Receive Date: 20241029
  Receipt Date: 20241029
  Transmission Date: 20250115
  Serious: Yes (Hospitalization)
  Sender: SANDOZ
  Company Number: US-SANDOZ-SDZ2024US089843

PATIENT
  Age: 89 Year
  Sex: Female

DRUGS (12)
  1. AZITHROMYCIN [Suspect]
     Active Substance: AZITHROMYCIN
     Indication: Mycobacterium avium complex infection
     Dosage: UNK UNK, TIW
     Route: 065
  2. AZITHROMYCIN [Suspect]
     Active Substance: AZITHROMYCIN
     Indication: Bronchiectasis
  3. CIPROFLOXACIN [Suspect]
     Active Substance: CIPROFLOXACIN
     Indication: Mycobacterium avium complex infection
     Dosage: UNK UNK, QD
     Route: 065
  4. CIPROFLOXACIN [Suspect]
     Active Substance: CIPROFLOXACIN
     Indication: Bronchiectasis
  5. CLARITHROMYCIN [Suspect]
     Active Substance: CLARITHROMYCIN
     Indication: Mycobacterium avium complex infection
     Dosage: UNK UNK, BID
     Route: 065
  6. CLARITHROMYCIN [Suspect]
     Active Substance: CLARITHROMYCIN
     Indication: Bronchiectasis
  7. ETHAMBUTOL [Suspect]
     Active Substance: ETHAMBUTOL HYDROCHLORIDE
     Indication: Mycobacterium avium complex infection
     Dosage: UNK UNK, TIW
     Route: 065
  8. ETHAMBUTOL [Suspect]
     Active Substance: ETHAMBUTOL HYDROCHLORIDE
     Indication: Bronchiectasis
  9. RIFABUTIN [Suspect]
     Active Substance: RIFABUTIN
     Indication: Mycobacterium avium complex infection
     Dosage: UNK
     Route: 065
  10. RIFABUTIN [Suspect]
     Active Substance: RIFABUTIN
     Indication: Bronchiectasis
  11. PANTOPRAZOLE [Concomitant]
     Active Substance: PANTOPRAZOLE
     Indication: Product used for unknown indication
     Dosage: 40 MG, BID
     Route: 065
  12. SUCRALFATE [Concomitant]
     Active Substance: SUCRALFATE
     Indication: Product used for unknown indication
     Dosage: UNK
     Route: 065

REACTIONS (5)
  - Respiratory symptom [Unknown]
  - Condition aggravated [Unknown]
  - Drug intolerance [Unknown]
  - Abdominal discomfort [Unknown]
  - Sinus congestion [Unknown]
